FAERS Safety Report 5500946-7 (Version None)
Quarter: 2007Q4

REPORT INFORMATION
  Report Type: 
  Country: None (occurrence: None)
  Receive Date: 20071029
  Receipt Date: 20071024
  Transmission Date: 20080405
  Serious: Yes (Other)
  Sender: FDA-Public Use
  Company Number: PHEH2007US13058

PATIENT
  Age: 93 Year
  Sex: Female

DRUGS (1)
  1. ENABLEX [Suspect]

REACTIONS (3)
  - BLINDNESS [None]
  - DRUG PRESCRIBING ERROR [None]
  - URINARY RETENTION [None]
